FAERS Safety Report 9024320 (Version 1)
Quarter: 2013Q1

REPORT INFORMATION
  Report Type: Spontaneous
  Country: DK (occurrence: DK)
  Receive Date: 20130121
  Receipt Date: 20130121
  Transmission Date: 20140127
  Serious: Yes (Other)
  Sender: FDA-Public Use
  Company Number: PHHY2013DK004271

PATIENT
  Age: 39 None
  Sex: Male

DRUGS (2)
  1. LEPONEX [Suspect]
     Indication: SCHIZOPHRENIA, PARANOID TYPE
     Dates: start: 20120511, end: 20120518
  2. ZYPREXA [Concomitant]
     Dates: start: 20120518

REACTIONS (6)
  - Fall [Unknown]
  - Face injury [Unknown]
  - Tooth fracture [Unknown]
  - Lip injury [Unknown]
  - Atrial fibrillation [Unknown]
  - Syncope [Unknown]
